FAERS Safety Report 26049265 (Version 1)
Quarter: 2025Q4

REPORT INFORMATION
  Report Type: Spontaneous
  Country: EU (occurrence: EU)
  Receive Date: 20251115
  Receipt Date: 20251115
  Transmission Date: 20260117
  Serious: Yes (Hospitalization)
  Sender: MACLEODS
  Company Number: EU-MACLEODS PHARMA-MAC2025056324

PATIENT

DRUGS (2)
  1. LIDOCAINE [Suspect]
     Active Substance: LIDOCAINE
     Indication: Local anaesthesia
     Dosage: EUTECTIC MIXTURES OF 2.5% LIDOCAINE AND 2.5% PRILOCAINE (EMLP), TOTAL 3500 MG
     Route: 061
  2. PRILOCAINE [Suspect]
     Active Substance: PRILOCAINE
     Indication: Local anaesthesia
     Dosage: EUTECTIC MIXTURES OF 2.5% LIDOCAINE AND 2.5% PRILOCAINE  (EMLP), 3500 MG
     Route: 061

REACTIONS (6)
  - Local anaesthetic systemic toxicity [Recovered/Resolved]
  - Poisoning [Unknown]
  - Methaemoglobinaemia [Recovered/Resolved]
  - Palpitations [Recovered/Resolved]
  - Overdose [Unknown]
  - Dizziness [Recovered/Resolved]
